FAERS Safety Report 22661883 (Version 1)
Quarter: 2023Q2

REPORT INFORMATION
  Report Type: Spontaneous
  Country: GR (occurrence: GR)
  Receive Date: 20230630
  Receipt Date: 20230630
  Transmission Date: 20230722
  Serious: Yes (Hospitalization)
  Sender: FDA-Public Use
  Company Number: GR-002147023-NVSC2023GR133948

PATIENT

DRUGS (2)
  1. RUXOLITINIB [Suspect]
     Active Substance: RUXOLITINIB
     Indication: Myelofibrosis
     Dosage: 20 MG, Q12H (LAST DOSE RECEIVED IN 2023)
     Route: 048
     Dates: start: 2019
  2. HYDROXYUREA [Concomitant]
     Active Substance: HYDROXYUREA
     Indication: Peripheral venous disease
     Dosage: UNK UNK, QD
     Route: 065

REACTIONS (1)
  - Respiratory tract infection [Not Recovered/Not Resolved]
